FAERS Safety Report 4393416-3 (Version None)
Quarter: 2004Q3

REPORT INFORMATION
  Report Type: 
  Country: None (occurrence: None)
  Receive Date: 20040707
  Receipt Date: 20040707
  Transmission Date: 20050211
  Serious: Yes (Hospitalization)
  Sender: FDA-Public Use
  Company Number: None

PATIENT
  Age: 55 Year
  Sex: Female
  Weight: 65.8 kg

DRUGS (2)
  1. FLUOROURACIL [Suspect]
     Indication: ANAL CANCER
  2. CISPLATIN [Suspect]

REACTIONS (4)
  - ESCHERICHIA URINARY TRACT INFECTION [None]
  - FATIGUE [None]
  - FEBRILE NEUTROPENIA [None]
  - MUCOSAL INFLAMMATION [None]
